FAERS Safety Report 4454238-8 (Version None)
Quarter: 2004Q3

REPORT INFORMATION
  Report Type: 
  Country: None (occurrence: None)
  Receive Date: 20040826
  Receipt Date: 20040610
  Transmission Date: 20050211
  Serious: No
  Sender: FDA-Public Use
  Company Number: WAES 0406USA01276

PATIENT
  Age: 77 Year
  Sex: Female

DRUGS (4)
  1. ZETIA [Suspect]
     Indication: BLOOD CHOLESTEROL INCREASED
     Dosage: PO
     Route: 048
     Dates: start: 20040310, end: 20040609
  2. CALTRATE [Concomitant]
  3. LIPITOR [Concomitant]
  4. ASCORBIC ACID [Concomitant]

REACTIONS (2)
  - EYE REDNESS [None]
  - FEELING HOT [None]
